FAERS Safety Report 22648376 (Version 1)
Quarter: 2023Q2

REPORT INFORMATION
  Report Type: Spontaneous
  Country: US (occurrence: US)
  Receive Date: 20230628
  Receipt Date: 20230628
  Transmission Date: 20230722
  Serious: Yes (Death)
  Sender: FDA-Public Use
  Company Number: US-BRISTOL-MYERS SQUIBB COMPANY-2023-090746

PATIENT
  Age: 74 Year
  Sex: Male

DRUGS (12)
  1. OPDIVO [Suspect]
     Active Substance: NIVOLUMAB
     Indication: Lung carcinoma cell type unspecified stage 0
     Dosage: DOSE : 480MG;     FREQ : EVERY 28DAYS
     Route: 042
     Dates: start: 20230608
  2. LUMAKRAS [Concomitant]
     Active Substance: SOTORASIB
     Indication: Product used for unknown indication
  3. CELEXA [Concomitant]
     Active Substance: CITALOPRAM HYDROBROMIDE
     Indication: Product used for unknown indication
  4. FENTANYL [Concomitant]
     Active Substance: FENTANYL
     Indication: Product used for unknown indication
  5. LIDOCAINE [Concomitant]
     Active Substance: LIDOCAINE
     Indication: Product used for unknown indication
  6. LOPERAMIDE HYDROCHLORIDE [Concomitant]
     Active Substance: LOPERAMIDE HYDROCHLORIDE
     Indication: Product used for unknown indication
  7. NALOXEGOL [Concomitant]
     Active Substance: NALOXEGOL
     Indication: Product used for unknown indication
  8. ONDANSETRON [Concomitant]
     Active Substance: ONDANSETRON
     Indication: Product used for unknown indication
  9. OXYCODONE [Concomitant]
     Active Substance: OXYCODONE
     Indication: Product used for unknown indication
  10. PREDNISONE [Concomitant]
     Active Substance: PREDNISONE
     Indication: Product used for unknown indication
  11. CITALOPRAM [Concomitant]
     Active Substance: CITALOPRAM HYDROBROMIDE
     Indication: Product used for unknown indication
  12. GABAPENTIN [Concomitant]
     Active Substance: GABAPENTIN
     Indication: Product used for unknown indication

REACTIONS (1)
  - Death [Fatal]
